FAERS Safety Report 5798460-7 (Version None)
Quarter: 2008Q3

REPORT INFORMATION
  Report Type: 
  Country: None (occurrence: None)
  Receive Date: 20080702
  Receipt Date: 20080623
  Transmission Date: 20090109
  Serious: Yes (Hospitalization, Other)
  Sender: FDA-Public Use
  Company Number: PHHY2008FR12109

PATIENT
  Sex: Female

DRUGS (8)
  1. VOLTAREN [Suspect]
     Indication: BACK PAIN
     Dosage: UNK
     Route: 030
     Dates: start: 20080528, end: 20080530
  2. ASPIRIN [Concomitant]
     Dosage: 75 MG, QD
     Route: 048
  3. HEMIGOXINE NATIVELLE [Concomitant]
     Dosage: 0.125 MG, QD
     Route: 048
  4. LASIX [Concomitant]
     Dosage: 60 MG, QD
     Route: 048
  5. ALDACTONE [Concomitant]
     Dosage: 25 MG, QD
     Route: 048
  6. OGAST [Concomitant]
     Dosage: 1 DF, QD
     Route: 048
  7. DAFLON [Concomitant]
     Dosage: 500 MG, QD
     Route: 048
  8. PROPOXYPHENE HCL AND ACETAMINOPHEN [Concomitant]
     Dosage: 2 DF, QD
     Route: 048

REACTIONS (12)
  - BLOOD CREATININE INCREASED [None]
  - BLOOD UREA INCREASED [None]
  - C-REACTIVE PROTEIN INCREASED [None]
  - DEHYDRATION [None]
  - HYPOALBUMINAEMIA [None]
  - INFECTION [None]
  - INFLAMMATION [None]
  - LEUKOCYTOSIS [None]
  - MALNUTRITION [None]
  - PAIN [None]
  - PREALBUMIN DECREASED [None]
  - RENAL FAILURE ACUTE [None]
